FAERS Safety Report 8857457 (Version 7)
Quarter: 2014Q3

REPORT INFORMATION
  Report Type: Spontaneous
  Country: US (occurrence: US)
  Receive Date: 20121024
  Receipt Date: 20140806
  Transmission Date: 20150326
  Serious: Yes (Hospitalization, Disabling, Other)
  Sender: FDA-Public Use
  Company Number: US-009507513-1210USA007062

PATIENT
  Sex: Female
  Weight: 111.11 kg

DRUGS (2)
  1. ALENDRONATE SODIUM. [Suspect]
     Active Substance: ALENDRONATE SODIUM
     Dosage: 70 MG, Q 7 DAYS
     Route: 048
     Dates: start: 20100901, end: 20110105
  2. FOSAMAX [Suspect]
     Active Substance: ALENDRONATE SODIUM
     Indication: OSTEOPOROSIS
     Dosage: 70 MG, QW
     Route: 048
     Dates: start: 201001, end: 201109

REACTIONS (24)
  - Cardiac failure congestive [Unknown]
  - Fall [Unknown]
  - Low turnover osteopathy [Not Recovered/Not Resolved]
  - Eyelid ptosis [Unknown]
  - Asthenia [Unknown]
  - Ecchymosis [Unknown]
  - Kyphosis [Unknown]
  - Osteoarthritis [Unknown]
  - Device breakage [Unknown]
  - Pain in extremity [Unknown]
  - Intramedullary rod insertion [Unknown]
  - Femur fracture [Not Recovered/Not Resolved]
  - Pain [Recovering/Resolving]
  - Femur fracture [Not Recovered/Not Resolved]
  - Asthma [Unknown]
  - Excoriation [Unknown]
  - Open reduction of fracture [Recovering/Resolving]
  - Skin abrasion [Unknown]
  - Anaemia [Unknown]
  - Medical device removal [Unknown]
  - Impaired healing [Not Recovered/Not Resolved]
  - Urinary tract infection enterococcal [Unknown]
  - Cerebrovascular accident [Unknown]
  - Type 1 diabetes mellitus [Unknown]

NARRATIVE: CASE EVENT DATE: 20101215
